FAERS Safety Report 9735787 (Version 2)
Quarter: 2013Q4

REPORT INFORMATION
  Report Type: Spontaneous
  Country: US (occurrence: US)
  Receive Date: 20131206
  Receipt Date: 20131206
  Transmission Date: 20140711
  Serious: No
  Sender: FDA-Public Use
  Company Number: US-GILEAD-2009-0023015

PATIENT
  Age: 71 Year
  Sex: Female

DRUGS (11)
  1. LETAIRIS [Suspect]
     Indication: PULMONARY ARTERIAL HYPERTENSION
     Route: 048
     Dates: start: 20090702
  2. LETAIRIS [Suspect]
     Route: 048
     Dates: start: 20090108, end: 20090223
  3. ZOCOR [Concomitant]
  4. RYTHMOL [Concomitant]
  5. ASPIRIN [Concomitant]
  6. TYLENOL [Concomitant]
  7. PRILOSEC [Concomitant]
  8. LIDOCAINE [Concomitant]
  9. GLUCOSAMINE [Concomitant]
  10. OSCAL [Concomitant]
  11. VITAMIN D [Concomitant]

REACTIONS (2)
  - Hypotension [Unknown]
  - Oropharyngeal pain [Not Recovered/Not Resolved]
